FAERS Safety Report 11876748 (Version 1)
Quarter: 2015Q4

REPORT INFORMATION
  Report Type: Spontaneous
  Country: US (occurrence: US)
  Receive Date: 20151229
  Receipt Date: 20151229
  Transmission Date: 20160305
  Serious: Yes (Other)
  Sender: FDA-Public Use
  Company Number: US-BAYER-2015-494440

PATIENT
  Age: 84 Year
  Sex: Female
  Weight: 61.22 kg

DRUGS (1)
  1. ALKA-SELTZER PLUS SEVERE SINUS CONGESTION AND COUGH [Suspect]
     Active Substance: ACETAMINOPHEN\DEXTROMETHORPHAN HYDROBROMIDE\PHENYLEPHRINE HYDROCHLORIDE
     Indication: NASOPHARYNGITIS
     Dosage: 2 U, PRN
     Route: 048
     Dates: start: 20151221, end: 20151222

REACTIONS (3)
  - Choking [Recovered/Resolved]
  - Product size issue [None]
  - Foreign body [Recovered/Resolved]

NARRATIVE: CASE EVENT DATE: 20151221
